FAERS Safety Report 4996463-3 (Version None)
Quarter: 2006Q2

REPORT INFORMATION
  Report Type: 
  Country: None (occurrence: None)
  Receive Date: 20060509
  Receipt Date: 20060505
  Transmission Date: 20061013
  Serious: Yes (Hospitalization)
  Sender: FDA-Public Use
  Company Number: DE-AVENTIS-200611320DE

PATIENT
  Age: 80 Year
  Sex: Male

DRUGS (1)
  1. ARAVA [Suspect]
     Dates: start: 20050101

REACTIONS (1)
  - HEPATITIS [None]
